FAERS Safety Report 16695782 (Version 2)
Quarter: 2019Q4

REPORT INFORMATION
  Report Type: Spontaneous
  Country: CN (occurrence: CN)
  Receive Date: 20190813
  Receipt Date: 20191119
  Transmission Date: 20200122
  Serious: Yes (Other)
  Sender: FDA-Public Use
  Company Number: CN-TERSERA THERAPEUTICS LLC-2019TRS000162

PATIENT

DRUGS (2)
  1. ZOLADEX [Suspect]
     Active Substance: GOSERELIN ACETATE
     Indication: ENDOMETRIOSIS
  2. ZOLADEX [Suspect]
     Active Substance: GOSERELIN ACETATE
     Indication: BENIGN OVARIAN TUMOUR
     Dosage: 3.6 MG
     Route: 058
     Dates: start: 20181231, end: 20181231

REACTIONS (5)
  - Angioedema [Recovered/Resolved]
  - Rash [Recovered/Resolved]
  - Myalgia [Unknown]
  - Drug eruption [Unknown]
  - Pruritus [Recovered/Resolved]

NARRATIVE: CASE EVENT DATE: 20181231
